FAERS Safety Report 11779524 (Version 13)
Quarter: 2017Q1

REPORT INFORMATION
  Report Type: Spontaneous
  Country: BE (occurrence: BE)
  Receive Date: 20151125
  Receipt Date: 20170222
  Transmission Date: 20170428
  Serious: Yes (Hospitalization)
  Sender: FDA-Public Use
  Company Number: BE-ABBVIE-15P-013-1505364-00

PATIENT
  Sex: Female

DRUGS (11)
  1. DUODOPA [Suspect]
     Active Substance: CARBIDOPA\LEVODOPA
     Dosage: AM= 0 ML; CD=UNKNOWN; ND= 3.4 ML/H DURING 8; ED 2 ML
     Route: 050
     Dates: start: 20170215
  2. DUODOPA [Suspect]
     Active Substance: CARBIDOPA\LEVODOPA
     Dosage: AM=0ML; CD=3.4ML/H FOR 16HRS; ED=2ML; ND=UNKNOWN/H FOR 8HRS
     Route: 050
     Dates: start: 20151124, end: 20151221
  3. LEVODOPA/BENSERAZIDE (PROLOPA) [Concomitant]
     Indication: PARKINSON^S DISEASE
     Dosage: DOSE STRENGTH: 100MG/ 25MG
  4. DUODOPA [Suspect]
     Active Substance: CARBIDOPA\LEVODOPA
     Dosage: AM= 0 ML; CD= 3.9 ML/H DURING 16 HRS; ND= 3.4 ML/H DURING 8; ED 2 ML
     Route: 050
     Dates: start: 20160927
  5. DUODOPA [Suspect]
     Active Substance: CARBIDOPA\LEVODOPA
     Indication: PARKINSON^S DISEASE
     Dosage: AM=0ML; CD=4ML/HR DURING 16HRS; ED=3ML; ND=3.5ML/HR DURING 8HRS
     Route: 050
     Dates: start: 20071030
  6. DUODOPA [Suspect]
     Active Substance: CARBIDOPA\LEVODOPA
     Dosage: AM= 0 ML; CD=3.9 ML/HR DURING 16 HRS; ND= 3.4 ML/H DURING 8; ED 2 ML
     Route: 050
     Dates: start: 20170215
  7. PROLOPA 250 [Concomitant]
     Indication: PRODUCT USED FOR UNKNOWN INDICATION
     Dosage: DOSE STRENGTH: 200MG/50MG
  8. DUODOPA [Suspect]
     Active Substance: CARBIDOPA\LEVODOPA
     Dosage: AM=0ML; CD=3.7ML/HR DURING 16HRS; ED=1.5ML; ND=3.4ML/HR DURING 8HRS
     Route: 050
     Dates: start: 20150804, end: 20151124
  9. PROLOPA 250 [Concomitant]
     Dosage: DOSE STRENGTH: 200MG/50MG 5/DAY AS RESCUE MEDICATION
  10. DUODOPA [Suspect]
     Active Substance: CARBIDOPA\LEVODOPA
     Dosage: DOSES CONTINUOUSLY MONITORED AND ADAPTED.
     Route: 050
     Dates: end: 20150804
  11. DUODOPA [Suspect]
     Active Substance: CARBIDOPA\LEVODOPA
     Dosage: AM=0ML; CD=3.7ML/H FOR 16HRS; ED=2ML; ND=3.4ML/H FOR 8HRS
     Route: 050
     Dates: start: 20151221, end: 20160927

REACTIONS (16)
  - Freezing phenomenon [Unknown]
  - Restlessness [Unknown]
  - Dry mouth [Unknown]
  - Hallucination [Unknown]
  - Stoma site hypergranulation [Not Recovered/Not Resolved]
  - Stoma site discharge [Not Recovered/Not Resolved]
  - Psychotic disorder [Unknown]
  - Hallucination, auditory [Unknown]
  - Device alarm issue [Recovered/Resolved]
  - Hallucination, visual [Unknown]
  - Agitation [Unknown]
  - Product quality issue [Unknown]
  - Impatience [Unknown]
  - Mental disorder [Unknown]
  - Crying [Unknown]
  - Tremor [Unknown]
